FAERS Safety Report 16213545 (Version 6)
Quarter: 2020Q4

REPORT INFORMATION
  Report Type: Spontaneous
  Country: US (occurrence: US)
  Receive Date: 20190418
  Receipt Date: 20201112
  Transmission Date: 20210113
  Serious: Yes (Other)
  Sender: FDA-Public Use
  Company Number: US-GILEAD-2019-0402572

PATIENT
  Age: 59 Year
  Sex: Female
  Weight: 81.63 kg

DRUGS (55)
  1. CYMBALTA [Concomitant]
     Active Substance: DULOXETINE HYDROCHLORIDE
  2. BACTRIM [Concomitant]
     Active Substance: SULFAMETHOXAZOLE\TRIMETHOPRIM
  3. MYLANTA [CALCIUM CARBONATE] [Concomitant]
     Active Substance: CALCIUM CARBONATE
  4. ESTRACE [Concomitant]
     Active Substance: ESTRADIOL
  5. IBUPROFEN. [Concomitant]
     Active Substance: IBUPROFEN
  6. VOLTAREN ACTIGO [DICLOFENAC SODIUM] [Concomitant]
     Active Substance: DICLOFENAC SODIUM
  7. PAMELOR [Concomitant]
     Active Substance: NORTRIPTYLINE HYDROCHLORIDE
  8. ACETAMINOPHEN. [Concomitant]
     Active Substance: ACETAMINOPHEN
  9. ASPIRIN [ACETYLSALICYLIC ACID] [Concomitant]
     Active Substance: ASPIRIN
  10. TETRACYCLINE [Concomitant]
     Active Substance: TETRACYCLINE
  11. TRIAMCINOLONE [Concomitant]
     Active Substance: TRIAMCINOLONE
  12. REYATAZ [Concomitant]
     Active Substance: ATAZANAVIR SULFATE
     Indication: HIV INFECTION
     Dosage: UNK
     Dates: start: 2009, end: 2016
  13. CIPROFLOXACIN. [Concomitant]
     Active Substance: CIPROFLOXACIN
  14. ZOCOR [Concomitant]
     Active Substance: SIMVASTATIN
  15. IMITREX [Concomitant]
     Active Substance: SUMATRIPTAN SUCCINATE
  16. NORCO [Concomitant]
     Active Substance: ACETAMINOPHEN\HYDROCODONE BITARTRATE
  17. LUNESTA [Concomitant]
     Active Substance: ESZOPICLONE
  18. TRUVADA [Suspect]
     Active Substance: EMTRICITABINE\TENOFOVIR DISOPROXIL FUMARATE
     Indication: HIV INFECTION
     Dosage: UNK
     Route: 048
     Dates: start: 20090207, end: 20160812
  19. DEXAMETHASONE. [Concomitant]
     Active Substance: DEXAMETHASONE
  20. PEPCID [Concomitant]
     Active Substance: FAMOTIDINE
  21. RESTORIL [Concomitant]
     Active Substance: TEMAZEPAM
  22. DOXYCYCLINE. [Concomitant]
     Active Substance: DOXYCYCLINE
  23. LIDOCAINE. [Concomitant]
     Active Substance: LIDOCAINE
  24. ATENOLOL. [Concomitant]
     Active Substance: ATENOLOL
  25. NEUROTIN [GABAPENTIN] [Concomitant]
  26. LYRICA [Concomitant]
     Active Substance: PREGABALIN
  27. VALIUM [Concomitant]
     Active Substance: DIAZEPAM
  28. SOLU-MEDROL [Concomitant]
     Active Substance: METHYLPREDNISOLONE SODIUM SUCCINATE
  29. COMPLERA [Suspect]
     Active Substance: EMTRICITABINE\RILPIVIRINE HYDROCHLORIDE\TENOFOVIR DISOPROXIL FUMARATE
     Indication: HIV INFECTION
     Dosage: UNK
     Route: 048
     Dates: start: 20121004, end: 20121009
  30. DESCOVY [Concomitant]
     Active Substance: EMTRICITABINE\TENOFOVIR ALAFENAMIDE FUMARATE
  31. ACYCLOVIR [ACICLOVIR SODIUM] [Concomitant]
     Active Substance: ACYCLOVIR
  32. AMOXICILLIN. [Concomitant]
     Active Substance: AMOXICILLIN
  33. PREDNISONE. [Concomitant]
     Active Substance: PREDNISONE
  34. SUSTIVA [Concomitant]
     Active Substance: EFAVIRENZ
  35. AMBIEN [Concomitant]
     Active Substance: ZOLPIDEM TARTRATE
  36. HYDROXYZINE [Concomitant]
     Active Substance: HYDROXYZINE HYDROCHLORIDE
  37. SEROQUEL [Concomitant]
     Active Substance: QUETIAPINE FUMARATE
  38. BIKTARVY [Concomitant]
     Active Substance: BICTEGRAVIR SODIUM\EMTRICITABINE\TENOFOVIR ALAFENAMIDE FUMARATE
  39. ATORVASTATIN [Concomitant]
     Active Substance: ATORVASTATIN
  40. CORTISONE [Concomitant]
     Active Substance: CORTISONE
  41. HEPARIN [Concomitant]
     Active Substance: HEPARIN SODIUM
  42. SIMVASTATIN. [Concomitant]
     Active Substance: SIMVASTATIN
  43. PREZISTA [Concomitant]
     Active Substance: DARUNAVIR ETHANOLATE
     Indication: HIV INFECTION
  44. COENZYME Q10 [Concomitant]
     Active Substance: DIETARY SUPPLEMENT\UBIDECARENONE
  45. MEPRON [Concomitant]
     Active Substance: ATOVAQUONE
  46. PRAVASTATINE [PRAVASTATIN] [Concomitant]
     Active Substance: PRAVASTATIN
  47. NORVIR [Concomitant]
     Active Substance: RITONAVIR
     Indication: HIV INFECTION
     Dosage: UNK
     Dates: start: 2009, end: 2016
  48. XANAX [Concomitant]
     Active Substance: ALPRAZOLAM
  49. MORPHINE [Concomitant]
     Active Substance: MORPHINE
  50. PREZCOBIX [Concomitant]
     Active Substance: COBICISTAT\DARUNAVIR ETHANOLATE
     Indication: HIV INFECTION
     Dosage: UNK
     Dates: start: 2016, end: 2018
  51. MOBICAM [MELOXICAM] [Concomitant]
  52. KLONOPIN [Concomitant]
     Active Substance: CLONAZEPAM
  53. TRAMADOL. [Concomitant]
     Active Substance: TRAMADOL
  54. ZYPREXA [Concomitant]
     Active Substance: OLANZAPINE
  55. BENZONATATE. [Concomitant]
     Active Substance: BENZONATATE

REACTIONS (12)
  - Bone density decreased [Unknown]
  - Spinal compression fracture [Not Recovered/Not Resolved]
  - Chronic kidney disease [Not Recovered/Not Resolved]
  - Emotional distress [Not Recovered/Not Resolved]
  - Anhedonia [Not Recovered/Not Resolved]
  - Pain [Not Recovered/Not Resolved]
  - Osteoarthritis [Unknown]
  - Exostosis [Unknown]
  - Anxiety [Not Recovered/Not Resolved]
  - Economic problem [Not Recovered/Not Resolved]
  - Renal impairment [Not Recovered/Not Resolved]
  - Renal failure [Not Recovered/Not Resolved]

NARRATIVE: CASE EVENT DATE: 2009
